FAERS Safety Report 7659285-0 (Version None)
Quarter: 2011Q3

REPORT INFORMATION
  Report Type: 
  Country: None (occurrence: None)
  Receive Date: 20110805
  Receipt Date: 20110705
  Transmission Date: 20111222
  Serious: Yes (Other)
  Sender: FDA-Public Use
  Company Number: GB-ROCHE-785965

PATIENT
  Age: 47 Year
  Sex: Male
  Weight: 113 kg

DRUGS (15)
  1. CARBOPLATIN [Interacting]
     Route: 042
  2. DARBEPOETIN ALFA [Interacting]
     Route: 065
  3. GRANISETRON [Interacting]
     Route: 042
  4. OXYCODONE HYDROCHLORIDE [Interacting]
     Indication: PAIN
     Route: 065
  5. WARFARIN SODIUM [Interacting]
     Route: 065
  6. BEVACIZUMAB [Suspect]
     Route: 065
  7. VITAMIN K TAB [Interacting]
     Route: 065
  8. CITALOPRAM HYDROBROMIDE [Interacting]
     Route: 065
  9. PACLITAXEL [Interacting]
     Route: 042
  10. ERLOTINIB HYDROCHLORIDE [Interacting]
     Dosage: DRUG WITH DRAWAN
     Route: 048
  11. CIMETIDINE [Interacting]
     Route: 042
  12. DEXAMETHASONE [Interacting]
     Route: 065
  13. ALPRAZOLAM [Interacting]
     Route: 065
  14. DIPHENHYDRAMINE HCL [Interacting]
     Route: 065
  15. LOPERAMIDE HCL [Interacting]
     Route: 065

REACTIONS (7)
  - CONTUSION [None]
  - SWELLING [None]
  - INTERNATIONAL NORMALISED RATIO INCREASED [None]
  - DRUG INTERACTION [None]
  - DIARRHOEA [None]
  - HAEMATOMA [None]
  - RASH [None]
